FAERS Safety Report 16630854 (Version 1)
Quarter: 2019Q3

REPORT INFORMATION
  Report Type: Report from Study
  Country: None (occurrence: AR)
  Receive Date: 20190725
  Receipt Date: 20190725
  Transmission Date: 20191004
  Serious: Yes (Other)
  Sender: FDA-Public Use
  Company Number: AR-ABBVIE-19K-007-2864869-00

PATIENT
  Age: 77 Year
  Sex: Female

DRUGS (1)
  1. HUMIRA [Suspect]
     Active Substance: ADALIMUMAB
     Indication: RHEUMATOID ARTHRITIS
     Route: 058
     Dates: start: 20130906

REACTIONS (4)
  - Tibia fracture [Unknown]
  - Limb crushing injury [Unknown]
  - Road traffic accident [Unknown]
  - Fibula fracture [Unknown]

NARRATIVE: CASE EVENT DATE: 20190408
